FAERS Safety Report 9720263 (Version 1)
Quarter: 2013Q4

REPORT INFORMATION
  Report Type: Spontaneous
  Country: US (occurrence: US)
  Receive Date: 20131129
  Receipt Date: 20131129
  Transmission Date: 20140711
  Serious: Yes (Hospitalization)
  Sender: FDA-Public Use
  Company Number: US-BRISTOL-MYERS SQUIBB COMPANY-19854009

PATIENT
  Age: 38 Year
  Sex: Male
  Weight: 133.8 kg

DRUGS (8)
  1. ABILIFY [Suspect]
     Indication: PSYCHOTIC DISORDER
     Route: 048
     Dates: start: 2013
  2. ABILIFY MAINTENA INJECTION [Suspect]
     Indication: PSYCHOTIC DISORDER
     Dates: start: 201307
  3. BABY ASPIRIN [Suspect]
  4. ZYRTEC [Concomitant]
  5. LISINOPRIL [Concomitant]
  6. FISH OIL [Concomitant]
  7. ZANTAC [Concomitant]
  8. MULTIVITAMIN [Concomitant]

REACTIONS (2)
  - Hallucination [Not Recovered/Not Resolved]
  - Off label use [Unknown]
